FAERS Safety Report 11966457 (Version 1)
Quarter: 2016Q1

REPORT INFORMATION
  Report Type: Spontaneous
  Country: US (occurrence: None)
  Receive Date: 20160126
  Receipt Date: 20160126
  Transmission Date: 20160526
  Serious: No
  Sender: FDA-Public Use
  Company Number: None

PATIENT
  Age: 22 Year
  Sex: Female
  Weight: 49.9 kg

DRUGS (2)
  1. BCP [Concomitant]
  2. BLISTEX MEDICATED LIP BALM [Suspect]
     Active Substance: DIMETHICONE\OXYBENZONE\PADIMATE O
     Indication: CHAPPED LIPS
     Dosage: OVERNIGHT

REACTIONS (7)
  - Pain [None]
  - Swelling [None]
  - Erythema [None]
  - Lip dry [None]
  - Pruritus [None]
  - Dermatitis [None]
  - Blister [None]

NARRATIVE: CASE EVENT DATE: 20160109
